FAERS Safety Report 9837174 (Version 1)
Quarter: 2014Q1

REPORT INFORMATION
  Report Type: Spontaneous
  Country: US (occurrence: None)
  Receive Date: 20140117
  Receipt Date: 20140117
  Transmission Date: 20141002
  Serious: No
  Sender: FDA-Public Use
  Company Number: None

PATIENT
  Age: 76 Year
  Sex: Male
  Weight: 72.12 kg

DRUGS (1)
  1. CICLOPIROX [Suspect]
     Indication: TINEA PEDIS
     Route: 061
     Dates: start: 20140114, end: 20140116

REACTIONS (1)
  - Fatigue [None]
